FAERS Safety Report 19675557 (Version 1)
Quarter: 2021Q3

REPORT INFORMATION
  Report Type: Spontaneous
  Country: US (occurrence: US)
  Receive Date: 20210809
  Receipt Date: 20210809
  Transmission Date: 20211014
  Serious: Yes (Hospitalization)
  Sender: FDA-Public Use
  Company Number: US-FRESENIUS MEDICAL CARE RENAL THERAPIES GROUP-FMC-2106-000774

PATIENT
  Age: 67 Year
  Sex: Male
  Weight: 97 kg

DRUGS (3)
  1. DELFLEX WITH DEXTROSE 2.5% LOW MAGNESIUM LOW CALCIUM [Suspect]
     Active Substance: CALCIUM CHLORIDE\DEXTROSE\MAGNESIUM CHLORIDE\SODIUM CHLORIDE\SODIUM LACTATE
     Indication: END STAGE RENAL DISEASE
     Dosage: FILL VOLUME = 2200 ML, FILLS = 4, LAST FILL = 0, DAYTIME EXCHANGE = 1, DAYTIME DWELL VOLUME = 2000 M
     Route: 033
     Dates: start: 20200708
  2. DELFLEX WITH DEXTROSE 1.5% LOW MAGNESIUM LOW CALCIUM [Suspect]
     Active Substance: CALCIUM CHLORIDE\DEXTROSE\MAGNESIUM CHLORIDE\SODIUM CHLORIDE\SODIUM LACTATE
     Indication: END STAGE RENAL DISEASE
     Dosage: FILL VOLUME = 2200 ML, FILLS = 4, LAST FILL = 0, DAYTIME EXCHANGE = 1, DAYTIME DWELL VOLUME = 2000 M
     Route: 033
     Dates: start: 20200708
  3. DELFLEX WITH DEXTROSE 4.25% LOW MAGNESIUM LOW CALCIUM [Suspect]
     Active Substance: CALCIUM CHLORIDE\DEXTROSE\MAGNESIUM CHLORIDE\SODIUM CHLORIDE\SODIUM LACTATE
     Indication: END STAGE RENAL DISEASE
     Dosage: FILL VOLUME = 2200 ML, FILLS = 4, LAST FILL = 0, DAYTIME EXCHANGE = 1, DAYTIME DWELL VOLUME = 2000 M
     Route: 033
     Dates: start: 20200708

REACTIONS (1)
  - Peritonitis [Recovering/Resolving]
